FAERS Safety Report 5471197-X (Version None)
Quarter: 2007Q3

REPORT INFORMATION
  Report Type: 
  Country: None (occurrence: None)
  Receive Date: 20070928
  Receipt Date: 20070627
  Transmission Date: 20080115
  Serious: No
  Sender: FDA-Public Use
  Company Number: A0661366A

PATIENT
  Sex: Female

DRUGS (1)
  1. FLOVENT [Suspect]
     Indication: DRUG USE FOR UNKNOWN INDICATION
     Dosage: 1PUFF TWICE PER DAY
     Route: 055

REACTIONS (1)
  - DYSPNOEA [None]
